FAERS Safety Report 17292192 (Version 1)
Quarter: 2020Q1

REPORT INFORMATION
  Report Type: Spontaneous
  Country: ES (occurrence: ES)
  Receive Date: 20200121
  Receipt Date: 20200121
  Transmission Date: 20200409
  Serious: Yes (Other)
  Sender: FDA-Public Use
  Company Number: ES-BAYER-2019-225425

PATIENT
  Age: 52 Year
  Sex: Female

DRUGS (1)
  1. IOPROMIDE. [Suspect]
     Active Substance: IOPROMIDE
     Indication: COMPUTERISED TOMOGRAM
     Dosage: UNK
     Route: 042

REACTIONS (7)
  - Loss of consciousness [None]
  - Erythema [None]
  - Anaphylactoid reaction [None]
  - Nausea [None]
  - Hypotension [None]
  - Urinary incontinence [None]
  - Dizziness [None]
